FAERS Safety Report 4682468-9 (Version None)
Quarter: 2005Q2

REPORT INFORMATION
  Report Type: 
  Country: None (occurrence: None)
  Receive Date: 20050602
  Receipt Date: 20050602
  Transmission Date: 20051028
  Serious: No
  Sender: FDA-Public Use
  Company Number: None

PATIENT
  Sex: Male

DRUGS (1)
  1. GENERIC SINEMET   50/200C [Suspect]
     Indication: PARKINSON'S DISEASE
     Dosage: 7X/D PO (YEARS)
     Route: 048

REACTIONS (1)
  - DRUG INTOLERANCE [None]
